FAERS Safety Report 8401109-8 (Version None)
Quarter: 2012Q2

REPORT INFORMATION
  Report Type: 
  Country: None (occurrence: None)
  Receive Date: 20120601
  Receipt Date: 20120529
  Transmission Date: 20120825
  Serious: No
  Sender: FDA-Public Use
  Company Number: US-PFIZER INC-2012129346

PATIENT
  Sex: Female
  Weight: 63 kg

DRUGS (2)
  1. ESTRING [Suspect]
     Indication: VULVOVAGINAL DRYNESS
     Dosage: UNK
     Route: 067
     Dates: start: 20120401
  2. ZYRTEC [Concomitant]
     Indication: HYPERSENSITIVITY
     Dosage: 25 MG, DAILY

REACTIONS (1)
  - DYSMENORRHOEA [None]
